FAERS Safety Report 8253385-2 (Version None)
Quarter: 2012Q2

REPORT INFORMATION
  Report Type: 
  Country: None (occurrence: None)
  Receive Date: 20120402
  Receipt Date: 20120313
  Transmission Date: 20120825
  Serious: No
  Sender: FDA-Public Use
  Company Number: US-AMGEN-USASP2012016376

PATIENT
  Age: 50 Year
  Sex: Male

DRUGS (1)
  1. ENBREL [Suspect]
     Indication: MENIERE'S DISEASE
     Dosage: 25 MG, 2 TIMES/WK
     Dates: start: 20060715, end: 20120101

REACTIONS (4)
  - MUSCULOSKELETAL PAIN [None]
  - FEELING HOT [None]
  - ARTHRALGIA [None]
  - FLUSHING [None]
